FAERS Safety Report 6165510-8 (Version None)
Quarter: 2009Q2

REPORT INFORMATION
  Report Type: 
  Country: None (occurrence: None)
  Receive Date: 20090423
  Receipt Date: 20090414
  Transmission Date: 20091009
  Serious: Yes (Other)
  Sender: FDA-Public Use
  Company Number: JP-PFIZER INC-2009200381

PATIENT

DRUGS (1)
  1. VIBRAMYCIN [Suspect]

REACTIONS (1)
  - LUNG DISORDER [None]
